FAERS Safety Report 4876502-0 (Version None)
Quarter: 2006Q1

REPORT INFORMATION
  Report Type: 
  Country: None (occurrence: None)
  Receive Date: 20060106
  Receipt Date: 20051227
  Transmission Date: 20060701
  Serious: Yes (Hospitalization, Other)
  Sender: FDA-Public Use
  Company Number: HQWYE155523DEC05

PATIENT
  Age: 23 Year
  Sex: Male

DRUGS (9)
  1. RAPAMUNE [Suspect]
     Indication: PROPHYLAXIS AGAINST TRANSPLANT REJECTION
     Dosage: SEE IMAGE
     Route: 048
     Dates: start: 20050323, end: 20050323
  2. RAPAMUNE [Suspect]
     Indication: PROPHYLAXIS AGAINST TRANSPLANT REJECTION
     Dosage: SEE IMAGE
     Route: 048
     Dates: start: 20050324
  3. CYCLOPORINE (CYCLOSPORINE) [Concomitant]
  4. PREDNISONE [Concomitant]
  5. NIFEDIPINE [Concomitant]
  6. ATENOLOL [Concomitant]
  7. NISTATIN (NYSTATIN) [Concomitant]
  8. RANITIDINE [Concomitant]
  9. SULFAMETHOXAZOLE + TRIMETHOPRIM [Concomitant]

REACTIONS (1)
  - KIDNEY TRANSPLANT REJECTION [None]
